FAERS Safety Report 6574799-2 (Version None)
Quarter: 2010Q1

REPORT INFORMATION
  Report Type: 
  Country: None (occurrence: None)
  Receive Date: 20100209
  Receipt Date: 20100126
  Transmission Date: 20100710
  Serious: Yes (Hospitalization, Other)
  Sender: FDA-Public Use
  Company Number: PHHY2009US53311

PATIENT
  Sex: Male
  Weight: 51.5 kg

DRUGS (6)
  1. EXJADE [Suspect]
     Indication: SICKLE CELL ANAEMIA WITH CRISIS
     Dosage: UNK
     Route: 048
  2. LISINOPRIL [Concomitant]
     Route: 048
  3. AMOXICILLIN [Concomitant]
  4. RISPERDAL [Concomitant]
  5. CLONIDINE [Concomitant]
  6. BLOOD TRANSFUSION, AUXILIARY PRODUCTS [Concomitant]

REACTIONS (5)
  - CEREBRAL ISCHAEMIA [None]
  - CEREBRAL REVASCULARISATION SYNANGIOSIS [None]
  - CEREBROVASCULAR ACCIDENT [None]
  - NEUROLOGICAL SYMPTOM [None]
  - SERUM FERRITIN INCREASED [None]
